FAERS Safety Report 8773912 (Version 2)
Quarter: 2015Q1

REPORT INFORMATION
  Report Type: Spontaneous
  Country: US (occurrence: US)
  Receive Date: 20120907
  Receipt Date: 20150105
  Transmission Date: 20150721
  Serious: Yes (Disabling)
  Sender: FDA-Public Use
  Company Number: US-009507513-1208USA012606

PATIENT
  Sex: Male
  Weight: 79.37 kg

DRUGS (2)
  1. PROPECIA [Suspect]
     Active Substance: FINASTERIDE
     Indication: ALOPECIA
     Dosage: 1 MG, QD
     Route: 048
     Dates: start: 20060612, end: 2009
  2. FINASTERIDE. [Suspect]
     Active Substance: FINASTERIDE
     Dosage: 1 MG, QD
     Route: 048
     Dates: start: 20090511

REACTIONS (33)
  - Stress [Unknown]
  - Dysuria [Unknown]
  - Blood homocysteine increased [Unknown]
  - Depression [Not Recovered/Not Resolved]
  - Gastrooesophageal reflux disease [Unknown]
  - Irritable bowel syndrome [Unknown]
  - Memory impairment [Unknown]
  - Muscle atrophy [Unknown]
  - Attention deficit/hyperactivity disorder [Unknown]
  - Balance disorder [Not Recovered/Not Resolved]
  - Exercise tolerance decreased [Unknown]
  - Anal pruritus [Unknown]
  - Fatigue [Unknown]
  - Constipation [Unknown]
  - Hypogonadism [Unknown]
  - Loss of libido [Unknown]
  - Cognitive disorder [Not Recovered/Not Resolved]
  - Seborrhoeic dermatitis [Unknown]
  - Neurodermatitis [Not Recovered/Not Resolved]
  - Arthritis [Unknown]
  - Abdominal distension [Unknown]
  - Eye laser surgery [Unknown]
  - Insulin-like growth factor decreased [Unknown]
  - Erectile dysfunction [Unknown]
  - Anxiety [Not Recovered/Not Resolved]
  - Intertrigo [Unknown]
  - Dandruff [Unknown]
  - Disturbance in attention [Unknown]
  - Dehydroepiandrosterone decreased [Unknown]
  - Sexual dysfunction [Not Recovered/Not Resolved]
  - Blood testosterone decreased [Unknown]
  - Dry skin [Unknown]
  - Hyperlipidaemia [Unknown]

NARRATIVE: CASE EVENT DATE: 20060817
